FAERS Safety Report 9152345 (Version 1)
Quarter: 2013Q1

REPORT INFORMATION
  Report Type: Report from Study
  Country: US (occurrence: US)
  Receive Date: 20130308
  Receipt Date: 20130308
  Transmission Date: 20140127
  Serious: Yes (Death)
  Sender: FDA-Public Use
  Company Number: US-ASTRAZENECA-2013SE15061

PATIENT
  Age: 57 Year
  Sex: Male

DRUGS (1)
  1. TOPROL  XL [Suspect]
     Route: 048

REACTIONS (1)
  - Death [Fatal]
